FAERS Safety Report 4316887-7 (Version None)
Quarter: 2004Q1

REPORT INFORMATION
  Report Type: 
  Country: None (occurrence: None)
  Receive Date: 20040308
  Receipt Date: 20040126
  Transmission Date: 20041129
  Serious: Yes (Life-Threatening)
  Sender: FDA-Public Use
  Company Number: PHEH2004US01253

PATIENT
  Age: 43 Year
  Sex: Male

DRUGS (4)
  1. GLEEVEC [Suspect]
     Indication: CHRONIC MYELOID LEUKAEMIA
     Dosage: 400 MG,QD, ORAL
     Route: 048
     Dates: start: 20031213, end: 20031225
  2. GLEEVEC [Suspect]
     Dosage: 300 MG,QD, ORAL
     Route: 048
  3. GLEEVEC [Suspect]
     Dosage: 600 MG, QD, ORAL
     Route: 048
  4. HYDREA [Concomitant]

REACTIONS (1)
  - PANCYTOPENIA [None]
